FAERS Safety Report 7899916-3 (Version None)
Quarter: 2011Q4

REPORT INFORMATION
  Report Type: 
  Country: None (occurrence: None)
  Receive Date: 20111107
  Receipt Date: 20111011
  Transmission Date: 20120403
  Serious: No
  Sender: FDA-Public Use
  Company Number: US-AMGEN-USASP2011037157

PATIENT
  Age: 48 Year
  Sex: Female

DRUGS (2)
  1. ENBREL [Suspect]
     Indication: PSORIATIC ARTHROPATHY
     Dosage: 50 MG, QWK
     Dates: start: 20110301
  2. PREMARIN [Concomitant]
     Indication: SUNBURN
     Dosage: UNK

REACTIONS (6)
  - ORAL HERPES [None]
  - SUNBURN [None]
  - PHOTOSENSITIVITY REACTION [None]
  - BLISTER [None]
  - PAPULE [None]
  - HEAVY EXPOSURE TO ULTRAVIOLET LIGHT [None]
